FAERS Safety Report 9187301 (Version 1)
Quarter: 2013Q1

REPORT INFORMATION
  Report Type: Report from Study
  Country: CA (occurrence: CA)
  Receive Date: 20130325
  Receipt Date: 20130325
  Transmission Date: 20140127
  Serious: Yes (Hospitalization, Other)
  Sender: FDA-Public Use
  Company Number: PHHY2012CA016752

PATIENT
  Sex: Female

DRUGS (7)
  1. CLOZARIL [Suspect]
     Indication: PSYCHOTIC DISORDER
     Dosage: 225 MG, DAILY
     Route: 048
     Dates: start: 20120202, end: 20120221
  2. CLOZARIL [Suspect]
     Dosage: UNK UKN, UNK
  3. METHYLPHENIDATE [Concomitant]
     Dosage: UNK UKN, UNK
     Route: 048
  4. BENZTROPINE [Concomitant]
     Route: 048
  5. MELATONIN [Concomitant]
     Dosage: 6 MG, UNK
     Route: 048
  6. LACTULOSA [Concomitant]
     Dosage: 45 ML, BID
  7. AVIANE [Concomitant]
     Route: 048

REACTIONS (11)
  - Loss of consciousness [Recovered/Resolved with Sequelae]
  - Encephalitis viral [Recovered/Resolved with Sequelae]
  - Meningitis [Recovered/Resolved with Sequelae]
  - Nuchal rigidity [Recovered/Resolved with Sequelae]
  - Status epilepticus [Recovered/Resolved with Sequelae]
  - Neutropenia [Recovered/Resolved with Sequelae]
  - White blood cell count decreased [Recovered/Resolved with Sequelae]
  - Pneumonia aspiration [Recovered/Resolved with Sequelae]
  - Myocarditis [Recovered/Resolved with Sequelae]
  - Tachycardia [Recovered/Resolved with Sequelae]
  - Pyrexia [Recovered/Resolved with Sequelae]
